FAERS Safety Report 8513754-X (Version None)
Quarter: 2012Q3

REPORT INFORMATION
  Report Type: 
  Country: None (occurrence: None)
  Receive Date: 20120705
  Receipt Date: 20120629
  Transmission Date: 20120928
  Serious: Yes (Other)
  Sender: FDA-Public Use
  Company Number: CF 1797995

PATIENT
  Sex: Male

DRUGS (3)
  1. PATADAY [Concomitant]
  2. POLYETHYLENE GLYCOL [Suspect]
     Indication: DRY EYE
     Dosage: 1 DROP IN EYE AS NEEDED
     Route: 047
     Dates: start: 20111101, end: 20120220
  3. TOBRADEX [Concomitant]

REACTIONS (6)
  - EYELID OEDEMA [None]
  - EYE INFECTION [None]
  - EYELIDS PRURITUS [None]
  - HYPERSENSITIVITY [None]
  - EYE IRRITATION [None]
  - EYELID IRRITATION [None]
